FAERS Safety Report 8491842-4 (Version None)
Quarter: 2012Q3

REPORT INFORMATION
  Report Type: 
  Country: None (occurrence: None)
  Receive Date: 20120706
  Receipt Date: 20110701
  Transmission Date: 20120928
  Serious: No
  Sender: FDA-Public Use
  Company Number: US-GLAXOSMITHKLINE-A0934779A

PATIENT
  Age: 11 Year
  Sex: Female

DRUGS (2)
  1. ALBUTEROL [Concomitant]
  2. FLOVENT [Suspect]
     Indication: ASTHMA
     Dosage: 3PUFF AT NIGHT
     Route: 055
     Dates: start: 20100601

REACTIONS (2)
  - DYSPNOEA [None]
  - PRODUCT QUALITY ISSUE [None]
